FAERS Safety Report 9798262 (Version 1)
Quarter: 2014Q1

REPORT INFORMATION
  Report Type: Spontaneous
  Country: US (occurrence: US)
  Receive Date: 20140106
  Receipt Date: 20140106
  Transmission Date: 20141002
  Serious: No
  Sender: FDA-Public Use
  Company Number: US-PFIZER INC-2014001790

PATIENT
  Age: 30 Year
  Sex: Male
  Weight: 79.37 kg

DRUGS (1)
  1. ADVIL COLD AND SINUS [Suspect]
     Indication: NASAL DISORDER
     Dosage: 30 MG, TWO TIMES DAY
     Dates: start: 201312

REACTIONS (1)
  - Drug screen positive [Unknown]
